FAERS Safety Report 5358501-8 (Version None)
Quarter: 2007Q2

REPORT INFORMATION
  Report Type: 
  Country: None (occurrence: None)
  Receive Date: 20070613
  Receipt Date: 20070613
  Transmission Date: 20071010
  Serious: Yes (Hospitalization)
  Sender: FDA-Public Use
  Company Number: None

PATIENT
  Age: 14 Year
  Sex: Male
  Weight: 127.0072 kg

DRUGS (1)
  1. ISOVUE-300 [Suspect]
     Indication: ABDOMINAL MASS
     Dosage: 150 ML 3.0 ML P/SECOND IV BOLUS
     Route: 040
     Dates: start: 20070608, end: 20070608

REACTIONS (1)
  - ANAPHYLACTIC REACTION [None]
